FAERS Safety Report 17072277 (Version 1)
Quarter: 2019Q4

REPORT INFORMATION
  Report Type: Spontaneous
  Country: RS (occurrence: RS)
  Receive Date: 20191125
  Receipt Date: 20191125
  Transmission Date: 20200122
  Serious: Yes (Death, Other)
  Sender: FDA-Public Use
  Company Number: RS-JNJFOC-20191122681

PATIENT
  Sex: Male

DRUGS (1)
  1. DUROGESIC [Suspect]
     Active Substance: FENTANYL
     Indication: PAIN
     Dosage: 5 BAGS IN TOTAL, 5X1
     Route: 062

REACTIONS (11)
  - Aphasia [Unknown]
  - Vomiting [Unknown]
  - Diarrhoea [Unknown]
  - Disorientation [Unknown]
  - Loss of consciousness [Unknown]
  - Decreased appetite [Unknown]
  - Insomnia [Unknown]
  - Euphoric mood [Unknown]
  - Coma [Fatal]
  - Pain [Unknown]
  - Hallucination [Unknown]
